FAERS Safety Report 24621019 (Version 1)
Quarter: 2024Q4

REPORT INFORMATION
  Report Type: Spontaneous
  Country: MA (occurrence: MA)
  Receive Date: 20241114
  Receipt Date: 20241114
  Transmission Date: 20250114
  Serious: Yes (Other)
  Sender: PFIZER
  Company Number: MA-PFIZER INC-PV202400147568

PATIENT
  Sex: Female

DRUGS (1)
  1. IBRANCE [Suspect]
     Active Substance: PALBOCICLIB
     Dosage: 75 MG
     Route: 048
     Dates: start: 202208, end: 202303

REACTIONS (1)
  - Immunodeficiency [Recovered/Resolved]
